FAERS Safety Report 5812087-X (Version None)
Quarter: 2008Q3

REPORT INFORMATION
  Report Type: 
  Country: None (occurrence: None)
  Receive Date: 20080716
  Receipt Date: 20080711
  Transmission Date: 20090109
  Serious: Yes (Other)
  Sender: FDA-Public Use
  Company Number: US-BOEHRINGER INGELHEIM GMBH, GERMANY-2008-BP-10806RO

PATIENT
  Age: 55 Year
  Sex: Female

DRUGS (9)
  1. PREDNISONE TAB [Suspect]
  2. MYCOPHENOLATE MOFETIL [Suspect]
  3. FK-506 [Suspect]
  4. ATORVASTATIN CALCIUM [Suspect]
  5. METOPROLOL TARTRATE [Suspect]
  6. SULFAMETHOXAZOLE AND TRIMETHOPRIM [Suspect]
  7. AMOXICILLIN [Concomitant]
     Indication: BRONCHITIS
  8. CIPROFLOXACIN [Concomitant]
     Indication: CAT SCRATCH DISEASE
  9. CIPROFLOXACIN [Concomitant]
     Indication: CHORIORETINITIS

REACTIONS (2)
  - CAT SCRATCH DISEASE [None]
  - CHORIORETINITIS [None]
